FAERS Safety Report 20199664 (Version 1)
Quarter: 2021Q4

REPORT INFORMATION
  Report Type: Spontaneous
  Country: US (occurrence: US)
  Receive Date: 20211217
  Receipt Date: 20211217
  Transmission Date: 20220303
  Serious: No
  Sender: FDA-Public Use
  Company Number: US-ORG100016242-2021000457

PATIENT
  Age: 49 Year
  Sex: Male

DRUGS (4)
  1. EXPAREL [Suspect]
     Active Substance: BUPIVACAINE
     Dosage: 2 ML EACH AS MAXILLARY INFILTRATION AROUND UPPER LEFT 2ND AND 3RD MOLAR AND 1 ML IN THE PALATE
     Route: 004
     Dates: start: 20210825, end: 20210825
  2. EPINEPHRINE\LIDOCAINE [Suspect]
     Active Substance: EPINEPHRINE\LIDOCAINE
     Route: 004
     Dates: start: 20210825, end: 20210825
  3. BUPIVACAINE HYDROCHLORIDE\EPINEPHRINE [Suspect]
     Active Substance: BUPIVACAINE HYDROCHLORIDE\EPINEPHRINE
     Route: 004
     Dates: start: 20210825, end: 20210825
  4. IBUPROFEN [Concomitant]
     Active Substance: IBUPROFEN
     Route: 048
     Dates: start: 20210825, end: 20210825

REACTIONS (2)
  - Diplopia [Recovered/Resolved]
  - Hypertension [Recovered/Resolved]

NARRATIVE: CASE EVENT DATE: 20210825
